FAERS Safety Report 16975148 (Version 1)
Quarter: 2019Q4

REPORT INFORMATION
  Report Type: Spontaneous
  Country: US (occurrence: US)
  Receive Date: 20191029
  Receipt Date: 20191029
  Transmission Date: 20200122
  Serious: Yes (Other)
  Sender: FDA-Public Use
  Company Number: None

PATIENT
  Age: 56 Year
  Sex: Male

DRUGS (8)
  1. AMLODIPINE [Suspect]
     Active Substance: AMLODIPINE BESYLATE
     Indication: HYPERTENSION
     Route: 048
     Dates: start: 20190108
  2. PREZISTA [Concomitant]
     Active Substance: DARUNAVIR ETHANOLATE
     Dates: start: 20171012
  3. ROSUVASTATIN 5MG [Concomitant]
     Active Substance: ROSUVASTATIN
     Dates: start: 20180329
  4. LEUCOVORIN 25MG [Concomitant]
     Active Substance: LEUCOVORIN CALCIUM
     Dates: start: 20171012
  5. AZITHROMYCIN 600MG [Concomitant]
     Dates: start: 20171012
  6. DARAPRIM [Suspect]
     Active Substance: PYRIMETHAMINE
     Indication: TOXOPLASMOSIS
     Route: 048
     Dates: start: 20171012
  7. GENVOYA [Concomitant]
     Active Substance: COBICISTAT\ELVITEGRAVIR\EMTRICITABINE\TENOFOVIR ALAFENAMIDE FUMARATE
     Dates: start: 20171012
  8. SULFADIAZINE 500M [Concomitant]
     Dates: start: 20171012

REACTIONS (2)
  - Pollakiuria [None]
  - Urinary incontinence [None]

NARRATIVE: CASE EVENT DATE: 20191028
